FAERS Safety Report 16597241 (Version 1)
Quarter: 2019Q3

REPORT INFORMATION
  Report Type: Spontaneous
  Country: GR (occurrence: GR)
  Receive Date: 20190719
  Receipt Date: 20190719
  Transmission Date: 20191004
  Serious: Yes (Hospitalization, Other)
  Sender: FDA-Public Use
  Company Number: GR-MYLANLABS-2019M1066654

PATIENT
  Age: 45 Year
  Sex: Male

DRUGS (3)
  1. PARACETAMOL [Suspect]
     Active Substance: ACETAMINOPHEN
     Indication: PRODUCT USED FOR UNKNOWN INDICATION
     Dosage: UNK
  2. HYOSCINE BUTYLBROMIDE [Suspect]
     Active Substance: BUTYLSCOPOLAMINE BROMIDE
     Indication: PRODUCT USED FOR UNKNOWN INDICATION
     Dosage: UNK
  3. RANITIDINE. [Suspect]
     Active Substance: RANITIDINE
     Indication: PRODUCT USED FOR UNKNOWN INDICATION
     Dosage: UNK

REACTIONS (18)
  - Gastrointestinal wall thickening [Unknown]
  - Oedema peripheral [Unknown]
  - Aortic thrombosis [Unknown]
  - Tachyarrhythmia [Unknown]
  - Stenosis [Unknown]
  - Electrocardiogram abnormal [Unknown]
  - Renal cyst [Unknown]
  - Troponin increased [Unknown]
  - Pleural effusion [Unknown]
  - Dehydration [Unknown]
  - Vomiting [Unknown]
  - Hypotension [Unknown]
  - Decreased appetite [Unknown]
  - Flatulence [Unknown]
  - Disease progression [Unknown]
  - Effusion [Unknown]
  - Abdominal tenderness [Unknown]
  - Abdominal pain [Unknown]
